FAERS Safety Report 5495567-9 (Version None)
Quarter: 2007Q4

REPORT INFORMATION
  Report Type: 
  Country: None (occurrence: None)
  Receive Date: 20071015
  Receipt Date: 20061114
  Transmission Date: 20080405
  Serious: Yes (Other)
  Sender: FDA-Public Use
  Company Number: S06-USA-04828-01

PATIENT
  Age: 35 Year
  Sex: Female

DRUGS (3)
  1. LEXAPRO [Suspect]
     Indication: NERVOUS SYSTEM DISORDER
     Dosage: 10 MG QD PO
     Route: 048
     Dates: start: 20051201, end: 20060501
  2. LEXAPRO [Suspect]
     Indication: NERVOUS SYSTEM DISORDER
     Dosage: 10 MG QD PO
     Route: 048
     Dates: start: 20060501, end: 20061001
  3. LEXAPRO [Suspect]
     Indication: NERVOUS SYSTEM DISORDER
     Dosage: 10 MG QD PO
     Route: 048
     Dates: start: 20061001

REACTIONS (1)
  - BLOOD PRESSURE DECREASED [None]
